FAERS Safety Report 6228795-5 (Version None)
Quarter: 2009Q2

REPORT INFORMATION
  Report Type: 
  Country: None (occurrence: None)
  Receive Date: 20090615
  Receipt Date: 20090603
  Transmission Date: 20091009
  Serious: Yes (Hospitalization)
  Sender: FDA-Public Use
  Company Number: FR-PFIZER INC-2009221851

PATIENT
  Age: 86 Year

DRUGS (3)
  1. XANAX [Suspect]
     Dosage: UNK
     Route: 048
     Dates: start: 20081206, end: 20081208
  2. ATHYMIL [Suspect]
     Dosage: 10 MG, 1X/DAY
     Route: 048
     Dates: start: 20081206, end: 20081208
  3. ALDACTAZINE [Concomitant]
     Route: 048

REACTIONS (2)
  - PNEUMONIA ASPIRATION [None]
  - SOMNOLENCE [None]
